FAERS Safety Report 5654394-X (Version None)
Quarter: 2008Q1

REPORT INFORMATION
  Report Type: 
  Country: None (occurrence: None)
  Receive Date: 20080305
  Receipt Date: 20080220
  Transmission Date: 20080703
  Serious: Yes (Hospitalization, Other)
  Sender: FDA-Public Use
  Company Number: 207859

PATIENT
  Age: 50 Year
  Sex: Female

DRUGS (1)
  1. AVONEX [Suspect]
     Indication: MULTIPLE SCLEROSIS
     Dosage: 30 UG; QW; IM
     Route: 030
     Dates: start: 20030423, end: 20041115

REACTIONS (14)
  - ARTERIOVENOUS FISTULA [None]
  - ARTERIOVENOUS MALFORMATION [None]
  - CEREBRAL ARTERY EMBOLISM [None]
  - DEEP VEIN THROMBOSIS [None]
  - DRUG TOXICITY [None]
  - DYSPHAGIA [None]
  - HEPATIC CYST [None]
  - INTRACRANIAL ANEURYSM [None]
  - LUNG NEOPLASM [None]
  - OESOPHAGEAL DISORDER [None]
  - POST PROCEDURAL COMPLICATION [None]
  - PULMONARY EMBOLISM [None]
  - TINNITUS [None]
  - VOCAL CORD DISORDER [None]
